FAERS Safety Report 7912774-3 (Version None)
Quarter: 2011Q4

REPORT INFORMATION
  Report Type: 
  Country: None (occurrence: None)
  Receive Date: 20111114
  Receipt Date: 20111102
  Transmission Date: 20120403
  Serious: Yes (Hospitalization)
  Sender: FDA-Public Use
  Company Number: US-GLAXOSMITHKLINE-A0871298A

PATIENT
  Age: 65 Year
  Sex: Female

DRUGS (2)
  1. AVANDIA [Suspect]
     Indication: TYPE 2 DIABETES MELLITUS
     Dosage: 4MG TWICE PER DAY
     Route: 048
     Dates: start: 20020201, end: 20070301
  2. AVANDAMET [Suspect]
     Indication: TYPE 2 DIABETES MELLITUS
     Route: 048
     Dates: start: 20040101

REACTIONS (11)
  - ECONOMIC PROBLEM [None]
  - IMPAIRED WORK ABILITY [None]
  - ANHEDONIA [None]
  - EMOTIONAL DISTRESS [None]
  - CORONARY ARTERY DISEASE [None]
  - CARDIAC OPERATION [None]
  - PAIN [None]
  - FEAR [None]
  - MYOCARDIAL INFARCTION [None]
  - BUNDLE BRANCH BLOCK LEFT [None]
  - CARDIAC PACEMAKER INSERTION [None]
